FAERS Safety Report 15987496 (Version 5)
Quarter: 2019Q3

REPORT INFORMATION
  Report Type: Spontaneous
  Country: US (occurrence: US)
  Receive Date: 20190220
  Receipt Date: 20190801
  Transmission Date: 20191004
  Serious: Yes (Other)
  Sender: FDA-Public Use
  Company Number: US-PFIZER INC-2019075318

PATIENT
  Age: 51 Year
  Sex: Female

DRUGS (5)
  1. PROTONIX [Suspect]
     Active Substance: PANTOPRAZOLE SODIUM
     Indication: DYSPEPSIA
     Dosage: UNK
     Dates: start: 201507, end: 201507
  2. PRILOSEC [Suspect]
     Active Substance: OMEPRAZOLE MAGNESIUM
     Dosage: 40 MG, UNK
     Dates: start: 20100101, end: 20170101
  3. PROTONIX [Suspect]
     Active Substance: PANTOPRAZOLE SODIUM
     Dosage: 40 MG, UNK
     Dates: start: 20150908
  4. PRILOSEC [Suspect]
     Active Substance: OMEPRAZOLE MAGNESIUM
     Indication: DYSPEPSIA
     Dosage: UNK
     Dates: start: 201507, end: 201507
  5. NEXIUM [Suspect]
     Active Substance: ESOMEPRAZOLE MAGNESIUM
     Indication: DYSPEPSIA
     Dosage: 40 MG, UNK
     Dates: start: 20100101, end: 20171231

REACTIONS (1)
  - Acute kidney injury [Unknown]

NARRATIVE: CASE EVENT DATE: 20150908
